FAERS Safety Report 9961633 (Version 2)
Quarter: 2014Q1

REPORT INFORMATION
  Report Type: Report from Study
  Country: US (occurrence: US)
  Receive Date: 20140305
  Receipt Date: 20140305
  Transmission Date: 20141002
  Serious: No
  Sender: FDA-Public Use
  Company Number: US-ABBVIE-13P-163-1109444-00

PATIENT
  Age: 62 Year
  Sex: Female

DRUGS (9)
  1. HUMIRA [Suspect]
     Indication: CROHN^S DISEASE
     Dates: start: 20130515, end: 20130515
  2. HUMIRA [Suspect]
     Dates: start: 20130529, end: 20130529
  3. HUMIRA [Suspect]
  4. ZANTAC [Concomitant]
     Indication: GASTRIC DISORDER
  5. ZOLOFT [Concomitant]
     Indication: DEPRESSION
  6. ACIPHEX [Concomitant]
     Indication: GASTRIC DISORDER
  7. ELMIRON [Concomitant]
     Indication: CYSTITIS INTERSTITIAL
  8. PHENERGAN [Concomitant]
     Indication: NAUSEA
  9. TRAMADOL [Concomitant]
     Indication: PAIN

REACTIONS (5)
  - Blood thyroid stimulating hormone increased [Not Recovered/Not Resolved]
  - Drug ineffective [Not Recovered/Not Resolved]
  - Bladder disorder [Unknown]
  - Abdominal pain [Unknown]
  - Urinary tract infection [Not Recovered/Not Resolved]
